FAERS Safety Report 9850869 (Version 1)
Quarter: 2014Q1

REPORT INFORMATION
  Report Type: Spontaneous
  Country: SE (occurrence: SE)
  Receive Date: 20140128
  Receipt Date: 20140128
  Transmission Date: 20141002
  Serious: Yes (Other)
  Sender: FDA-Public Use
  Company Number: SE-PFIZER INC-2014023623

PATIENT
  Age: 62 Year
  Sex: Female

DRUGS (23)
  1. LYRICA [Suspect]
     Indication: ANXIETY
     Dosage: 25 MG, 1X/DAY
     Dates: start: 20130913
  2. LYRICA [Suspect]
     Dosage: 50 MG, 1X/DAY
     Dates: end: 20140116
  3. OMEPRAZOL [Concomitant]
     Dosage: UNK
  4. CILAXORAL [Concomitant]
     Dosage: UNK
  5. NOVORAPID [Concomitant]
     Dosage: UNK
  6. LANTUS [Concomitant]
     Dosage: UNK
  7. METFORMIN [Concomitant]
     Dosage: UNK
  8. JANUVIA [Concomitant]
     Dosage: UNK
  9. CALCICHEW-D3 [Concomitant]
     Dosage: UNK
  10. TROMBYL [Concomitant]
     Dosage: UNK
  11. DUROFERON [Concomitant]
     Dosage: UNK
  12. BETOLVEX [Concomitant]
     Dosage: UNK
  13. FOLACIN [Concomitant]
     Dosage: UNK
  14. LEVAXIN [Concomitant]
     Dosage: UNK
  15. TAMOXIFEN [Concomitant]
     Dosage: UNK
  16. DICLOFENAC [Concomitant]
     Dosage: UNK
  17. SOBRIL [Concomitant]
     Dosage: UNK
  18. ZOLPIDEM [Concomitant]
     Dosage: UNK
  19. PROPAVAN [Concomitant]
     Dosage: UNK
  20. MIANSERIN [Concomitant]
     Dosage: UNK
  21. DIMETICONE [Concomitant]
     Dosage: UNK
  22. TRADOLAN [Concomitant]
     Dosage: UNK
  23. ALVEDON [Concomitant]
     Dosage: UNK

REACTIONS (2)
  - Pharyngeal haemorrhage [Recovered/Resolved]
  - Throat tightness [Recovered/Resolved]
